FAERS Safety Report 8843500 (Version 2)
Quarter: 2012Q4

REPORT INFORMATION
  Report Type: 
  Country: DE (occurrence: DE)
  Receive Date: 20121016
  Receipt Date: 20121226
  Transmission Date: 20130627
  Serious: Yes (Hospitalization, Other)
  Sender: FDA-Public Use
  Company Number: DE-ELI_LILLY_AND_COMPANY-DE201209006859

PATIENT
  Sex: Male

DRUGS (14)
  1. BYETTA [Suspect]
     Indication: DIABETES MELLITUS
     Dosage: 10 ug, UNK
     Route: 058
     Dates: start: 201208
  2. BYETTA [Suspect]
     Dosage: 5 ug, UNK
     Dates: end: 20121214
  3. METFORMIN [Concomitant]
     Dosage: 500 mg, bid
  4. LANTUS [Concomitant]
     Dosage: UNK, each evening
  5. AMLODIPIN                          /00972401/ [Concomitant]
     Dosage: 10 DF, UNK
  6. SIMVABETA [Concomitant]
     Dosage: 30 mg, UNK
  7. ASS [Concomitant]
     Dosage: 100 mg, UNK
  8. CARBAMAZEPIN [Concomitant]
     Dosage: UNK
  9. VOTUM PLUS [Concomitant]
     Dosage: 25 mg, UNK
  10. VOTUM PLUS [Concomitant]
     Dosage: 50 mg, UNK
  11. TORASEMID [Concomitant]
     Dosage: UNK
  12. OMEPRAZOL [Concomitant]
     Dosage: UNK
  13. BISOPROLOL [Concomitant]
     Dosage: UNK
  14. NOVORAPID [Concomitant]

REACTIONS (7)
  - Brain operation [Unknown]
  - Nausea [Not Recovered/Not Resolved]
  - Vomiting [Not Recovered/Not Resolved]
  - Blood glucose increased [Unknown]
  - Constipation [Not Recovered/Not Resolved]
  - Dysgeusia [Not Recovered/Not Resolved]
  - Glycosylated haemoglobin increased [Not Recovered/Not Resolved]
